FAERS Safety Report 8249824-3 (Version None)
Quarter: 2012Q1

REPORT INFORMATION
  Report Type: 
  Country: None (occurrence: None)
  Receive Date: 20120328
  Receipt Date: 20120319
  Transmission Date: 20120608
  Serious: Yes (Hospitalization, Other)
  Sender: FDA-Public Use
  Company Number: TPA2012A01501

PATIENT
  Sex: Male

DRUGS (3)
  1. ACTOS [Suspect]
  2. LANTUS [Suspect]
  3. GLIMEPIRIDE [Suspect]

REACTIONS (1)
  - BLOOD GLUCOSE INCREASED [None]
